FAERS Safety Report 7760254-0 (Version None)
Quarter: 2011Q3

REPORT INFORMATION
  Report Type: 
  Country: None (occurrence: None)
  Receive Date: 20110919
  Receipt Date: 20110912
  Transmission Date: 20111222
  Serious: Yes (Other)
  Sender: FDA-Public Use
  Company Number: JP-GLAXOSMITHKLINE-B0744033A

PATIENT
  Sex: Male

DRUGS (1)
  1. CEFTAZIDIME SODIUM [Suspect]
     Indication: BRONCHITIS
     Dosage: 1G PER DAY
     Route: 042
     Dates: start: 20110826, end: 20110826

REACTIONS (4)
  - CONTUSION [None]
  - NAUSEA [None]
  - SYNCOPE [None]
  - DRUG HYPERSENSITIVITY [None]
